FAERS Safety Report 18033332 (Version 3)
Quarter: 2020Q4

REPORT INFORMATION
  Report Type: Spontaneous
  Country: US (occurrence: US)
  Receive Date: 20200716
  Receipt Date: 20201201
  Transmission Date: 20210113
  Serious: No
  Sender: FDA-Public Use
  Company Number: US-PFIZER INC-2020145706

PATIENT
  Age: 57 Year
  Sex: Male

DRUGS (5)
  1. XELJANZ XR [Suspect]
     Active Substance: TOFACITINIB CITRATE
     Indication: RHEUMATOID ARTHRITIS
     Dosage: 11 MG, DAILY
     Route: 048
     Dates: start: 20200328
  2. PREDNISONE. [Concomitant]
     Active Substance: PREDNISONE
     Dosage: 10 MG
     Dates: start: 202011
  3. PREDNISONE. [Concomitant]
     Active Substance: PREDNISONE
     Indication: RHEUMATOID ARTHRITIS
     Dosage: 7.5 MG, DAILY
     Dates: end: 2020
  4. LEFLUNOMIDE. [Concomitant]
     Active Substance: LEFLUNOMIDE
     Indication: JOINT SWELLING
     Dosage: UNK
  5. SULFASALAZINE. [Concomitant]
     Active Substance: SULFASALAZINE
     Indication: RHEUMATOID ARTHRITIS
     Dosage: UNK

REACTIONS (13)
  - Depression [Unknown]
  - Product dose omission issue [Unknown]
  - Urinary tract infection [Unknown]
  - Contusion [Unknown]
  - Frustration tolerance decreased [Unknown]
  - Fall [Unknown]
  - Cough [Unknown]
  - Dyspnoea [Unknown]
  - Feeling abnormal [Unknown]
  - Pain in extremity [Unknown]
  - Limb injury [Unknown]
  - Bone pain [Unknown]
  - Musculoskeletal chest pain [Unknown]

NARRATIVE: CASE EVENT DATE: 2020
